FAERS Safety Report 9995024 (Version 1)
Quarter: 2014Q1

REPORT INFORMATION
  Report Type: Spontaneous
  Country: US (occurrence: None)
  Receive Date: 20140307
  Receipt Date: 20140307
  Transmission Date: 20141002
  Serious: Yes (Other)
  Sender: FDA-Public Use
  Company Number: None

PATIENT
  Age: 38 Year
  Sex: Female
  Weight: 63.5 kg

DRUGS (4)
  1. SEROQUEL [Suspect]
     Indication: SLEEP DISORDER
     Dosage: ADMINISTERED PILLS - AT PYSH. HOSPITAL/SAMPLES; BEDTIME AS NEEDED/REQUIRED
     Route: 048
     Dates: start: 201303, end: 201312
  2. SEROQUEL [Suspect]
     Dosage: ADMINISTERED PILLS - AT PYSH. HOSPITAL/SAMPLES; BEDTIME AS NEEDED/REQUIRED
     Route: 048
     Dates: start: 201303, end: 201312
  3. VITAMIN D [Concomitant]
  4. EDAVIN-EMERGEN - C [Concomitant]

REACTIONS (1)
  - Loss of consciousness [None]
